FAERS Safety Report 6458531-9 (Version None)
Quarter: 2009Q4

REPORT INFORMATION
  Report Type: 
  Country: None (occurrence: None)
  Receive Date: 20091126
  Receipt Date: 20091117
  Transmission Date: 20100525
  Serious: Yes (Hospitalization)
  Sender: FDA-Public Use
  Company Number: US-BIOGENIDEC-2009BI037596

PATIENT
  Age: 46 Year
  Sex: Female

DRUGS (2)
  1. AVONEX [Suspect]
     Indication: MULTIPLE SCLEROSIS
     Route: 030
     Dates: start: 20030701, end: 20070101
  2. MEDICINE [NOS] [Concomitant]
     Indication: NERVOUSNESS

REACTIONS (3)
  - BLOOD BLISTER [None]
  - DRUG INTERACTION [None]
  - STEVENS-JOHNSON SYNDROME [None]
